FAERS Safety Report 8261602-8 (Version None)
Quarter: 2012Q2

REPORT INFORMATION
  Report Type: 
  Country: None (occurrence: None)
  Receive Date: 20120405
  Receipt Date: 20120325
  Transmission Date: 20120825
  Serious: Yes (Hospitalization)
  Sender: FDA-Public Use
  Company Number: CA-MYLANLABS-2012S1000286

PATIENT
  Age: 83 Year
  Sex: Male

DRUGS (9)
  1. CAPTOPRIL [Concomitant]
     Route: 048
  2. ISOSORBIDE MONONITRATE [Concomitant]
     Dosage: 30MG Q.D.
     Route: 048
  3. BISOPROLOL FUMARATE [Concomitant]
     Dosage: 2.5MG Q.D.
     Route: 048
  4. CLARITHROMYCIN [Suspect]
     Indication: PNEUMONIA
     Route: 048
  5. FUROSEMIDE [Concomitant]
     Dosage: 60MG Q.D.
     Route: 048
  6. PRAVASTATIN [Concomitant]
     Dosage: 40MG Q.D.
     Route: 048
  7. DIGOXIN [Interacting]
     Dosage: 0.125MG Q.D.
     Route: 048
  8. SPIRONOLACTONE [Interacting]
     Route: 048
  9. POTASSIUM [Concomitant]
     Dosage: 20 MMOL Q.D.
     Route: 048

REACTIONS (9)
  - DYSPNOEA EXERTIONAL [None]
  - COUGH [None]
  - DECREASED APPETITE [None]
  - DIZZINESS [None]
  - VENTRICULAR EXTRASYSTOLES [None]
  - DRUG INTERACTION [None]
  - FATIGUE [None]
  - TOXICITY TO VARIOUS AGENTS [None]
  - NAUSEA [None]
